FAERS Safety Report 17338455 (Version 6)
Quarter: 2022Q3

REPORT INFORMATION
  Report Type: Report from Study
  Country: CA (occurrence: CA)
  Receive Date: 20200129
  Receipt Date: 20220708
  Transmission Date: 20221027
  Serious: Yes (Other)
  Sender: FDA-Public Use
  Company Number: CA-GLAXOSMITHKLINE-CA2020AMR014703

PATIENT

DRUGS (5)
  1. ALBUTEROL SULFATE [Interacting]
     Active Substance: ALBUTEROL SULFATE
     Indication: Product used for unknown indication
     Dosage: UNK PRN
  2. SYMBICORT [Interacting]
     Active Substance: BUDESONIDE\FORMOTEROL FUMARATE DIHYDRATE
     Indication: Product used for unknown indication
     Dosage: 2 PUFF(S), TID 200/6 MCG
     Route: 055
  3. PREDNISONE [Interacting]
     Active Substance: PREDNISONE
     Indication: Product used for unknown indication
     Dosage: 5 MG
  4. GLYCOPYRROLATE [Interacting]
     Active Substance: GLYCOPYRROLATE
     Indication: Product used for unknown indication
     Dosage: UNK
  5. NUCALA [Concomitant]
     Active Substance: MEPOLIZUMAB
     Indication: Asthma
     Dosage: 100 MG
     Dates: start: 20200220

REACTIONS (8)
  - Glaucoma [Unknown]
  - Asthma [Unknown]
  - Sleep disorder due to a general medical condition [Unknown]
  - Loss of personal independence in daily activities [Unknown]
  - Dyspnoea [Unknown]
  - Wheezing [Recovered/Resolved]
  - Drug interaction [Unknown]
  - Therapeutic product effect incomplete [Unknown]
